FAERS Safety Report 10606886 (Version 2)
Quarter: 2014Q4

REPORT INFORMATION
  Report Type: Spontaneous
  Country: UA (occurrence: UA)
  Receive Date: 20141125
  Receipt Date: 20141203
  Transmission Date: 20150529
  Serious: Yes (Death)
  Sender: FDA-Public Use
  Company Number: UA-ASTRAZENECA-2014SE88198

PATIENT
  Age: 85 Year
  Sex: Female

DRUGS (3)
  1. FLENOX [Concomitant]
     Indication: ANTICOAGULANT THERAPY
  2. PROMEDOL [Concomitant]
     Indication: ANTICOAGULANT THERAPY
  3. BRILINTA [Suspect]
     Active Substance: TICAGRELOR
     Indication: ACUTE CORONARY SYNDROME
     Route: 048

REACTIONS (2)
  - Cardiopulmonary failure [Fatal]
  - Internal haemorrhage [Fatal]
